FAERS Safety Report 7887389-6 (Version None)
Quarter: 2011Q4

REPORT INFORMATION
  Report Type: 
  Country: None (occurrence: None)
  Receive Date: 20111102
  Receipt Date: 20110718
  Transmission Date: 20120403
  Serious: No
  Sender: FDA-Public Use
  Company Number: US-AMGEN-USASP2011036293

PATIENT
  Age: 37 Year
  Sex: Female
  Weight: 88.435 kg

DRUGS (15)
  1. MULTIVITAMIN                       /00097801/ [Concomitant]
  2. FISH OIL [Concomitant]
  3. BACLOFEN [Concomitant]
     Dosage: 10 MG, UNK
  4. SENNA                              /00142201/ [Concomitant]
     Dosage: 15 MG, UNK
  5. DOXYCYCLINE [Concomitant]
     Dosage: 20 MG, UNK
  6. VITAMIN C                          /00008001/ [Concomitant]
     Dosage: 500 MG, UNK
  7. SEROQUEL [Concomitant]
     Dosage: 100 MG, UNK
  8. PLAQUENIL [Concomitant]
     Dosage: 200 MG, UNK
  9. NEURONTIN [Concomitant]
     Dosage: 100 MG, UNK
  10. CYMBALTA [Concomitant]
     Dosage: 20 MG, UNK
  11. MIRALAX [Concomitant]
  12. ENBREL [Suspect]
     Indication: PRODUCT USED FOR UNKNOWN INDICATION
     Dosage: 50 MG, QWK
     Route: 058
  13. VITAMIN B COMPLEX CAP [Concomitant]
  14. NABUMETONE [Concomitant]
     Dosage: 750 MG, UNK
  15. SYNTHROID [Concomitant]
     Dosage: 100 MUG, UNK

REACTIONS (3)
  - PRURITUS [None]
  - FEELING HOT [None]
  - ERYTHEMA [None]
